FAERS Safety Report 4924934-4 (Version None)
Quarter: 2006Q1

REPORT INFORMATION
  Report Type: 
  Country: None (occurrence: None)
  Receive Date: 20060222
  Receipt Date: 20060213
  Transmission Date: 20060701
  Serious: Yes (Hospitalization)
  Sender: FDA-Public Use
  Company Number: 2005BI022357

PATIENT
  Age: 56 Year
  Sex: Male

DRUGS (1)
  1. AVONEX [Suspect]
     Indication: MULTIPLE SCLEROSIS
     Dosage: IM
     Route: 030
     Dates: start: 20000901

REACTIONS (7)
  - ANKLE FRACTURE [None]
  - FALL [None]
  - IMMUNE SYSTEM DISORDER [None]
  - LIMB INJURY [None]
  - NASOPHARYNGITIS [None]
  - OSTEOMYELITIS [None]
  - STRESS [None]
